FAERS Safety Report 5026842-X (Version None)
Quarter: 2006Q2

REPORT INFORMATION
  Report Type: 
  Country: None (occurrence: None)
  Receive Date: 20060608
  Receipt Date: 20060526
  Transmission Date: 20061013
  Serious: Yes (Death, Other)
  Sender: FDA-Public Use
  Company Number: 2006070207

PATIENT
  Age: 55 Year
  Sex: Female

DRUGS (2)
  1. CLINDAMYCIN PHOSPHATE [Suspect]
     Indication: MITRAL VALVE CALCIFICATION
     Dates: start: 20040101, end: 20040718
  2. BENZYLPENICILLIN (BENZYLPENICILLIN) [Concomitant]

REACTIONS (16)
  - ANAPHYLACTIC SHOCK [None]
  - ANGINA PECTORIS [None]
  - ATRIAL FIBRILLATION [None]
  - BRAIN OEDEMA [None]
  - CARDIAC VALVE VEGETATION [None]
  - CARDIO-RESPIRATORY ARREST [None]
  - CEREBRAL ISCHAEMIA [None]
  - CEREBRAL VENOUS THROMBOSIS [None]
  - DIABETES MELLITUS [None]
  - ENDOCARDITIS [None]
  - HEPATORENAL FAILURE [None]
  - HYPOXIC ENCEPHALOPATHY [None]
  - MYOCARDIAL ISCHAEMIA [None]
  - PULMONARY OEDEMA [None]
  - RESPIRATORY DEPRESSION [None]
  - TACHYCARDIA [None]
